FAERS Safety Report 22090981 (Version 6)
Quarter: 2023Q2

REPORT INFORMATION
  Report Type: Spontaneous
  Country: US (occurrence: US)
  Receive Date: 20230314
  Receipt Date: 20230411
  Transmission Date: 20230722
  Serious: No
  Sender: FDA-Public Use
  Company Number: US-UNITED THERAPEUTICS-UNT-2023-006930

PATIENT
  Age: 77 Year
  Sex: Female
  Weight: 65.76 kg

DRUGS (10)
  1. TYVASO DPI [Interacting]
     Active Substance: TREPROSTINIL
     Indication: Pulmonary arterial hypertension
     Dosage: 16 ?G, QID
  2. TYVASO DPI [Interacting]
     Active Substance: TREPROSTINIL
     Dosage: UNK (RESTARTED)
  3. TYVASO DPI [Interacting]
     Active Substance: TREPROSTINIL
     Dosage: 48 ?G, QID
  4. TYVASO DPI [Interacting]
     Active Substance: TREPROSTINIL
     Dosage: UNK
     Dates: start: 20230227, end: 202303
  5. TYVASO DPI [Interacting]
     Active Substance: TREPROSTINIL
     Indication: Pulmonary arterial hypertension
     Dosage: UNK
  6. TYVASO DPI [Interacting]
     Active Substance: TREPROSTINIL
     Dosage: UNK
  7. TYVASO DPI [Interacting]
     Active Substance: TREPROSTINIL
     Dosage: UNK
  8. TYVASO DPI [Suspect]
     Active Substance: TREPROSTINIL
     Indication: Pulmonary arterial hypertension
     Dosage: UNK
  9. TYVASO DPI [Suspect]
     Active Substance: TREPROSTINIL
     Dosage: UNK
  10. PREDNISONE [Interacting]
     Active Substance: PREDNISONE
     Indication: Product used for unknown indication
     Dosage: UNK
     Route: 065

REACTIONS (22)
  - Panic attack [Unknown]
  - Drug interaction [Unknown]
  - Headache [Unknown]
  - Cough [Unknown]
  - Dyspnoea [Unknown]
  - Rhinorrhoea [Unknown]
  - Throat irritation [Unknown]
  - Oxygen saturation decreased [Unknown]
  - Anaemia [Unknown]
  - Diarrhoea [Unknown]
  - Oral pain [Unknown]
  - Glossodynia [Unknown]
  - Taste disorder [Unknown]
  - Decreased appetite [Recovering/Resolving]
  - Anxiety [Recovering/Resolving]
  - Tongue discomfort [Recovering/Resolving]
  - Oral discomfort [Recovering/Resolving]
  - Productive cough [Recovering/Resolving]
  - Paraesthesia [Recovering/Resolving]
  - Parosmia [Unknown]
  - Heart rate increased [Recovering/Resolving]
  - Feeling abnormal [Recovering/Resolving]

NARRATIVE: CASE EVENT DATE: 20230301
